FAERS Safety Report 11495809 (Version 2)
Quarter: 2015Q4

REPORT INFORMATION
  Report Type: Spontaneous
  Country: US (occurrence: US)
  Receive Date: 20150911
  Receipt Date: 20151104
  Transmission Date: 20160304
  Serious: No
  Sender: FDA-Public Use
  Company Number: US-PFIZER INC-2015280592

PATIENT
  Age: 53 Year
  Sex: Male
  Weight: 116 kg

DRUGS (2)
  1. LIPITOR [Suspect]
     Active Substance: ATORVASTATIN CALCIUM
     Indication: BLOOD CHOLESTEROL ABNORMAL
     Dosage: 10 MG, DAILY
  2. ATORVASTATIN CALCIUM. [Suspect]
     Active Substance: ATORVASTATIN CALCIUM
     Dosage: 10 MG, UNK
     Dates: start: 20150625

REACTIONS (4)
  - Myalgia [Not Recovered/Not Resolved]
  - Pain [Unknown]
  - Drug dispensing error [Unknown]
  - Muscle fatigue [Not Recovered/Not Resolved]

NARRATIVE: CASE EVENT DATE: 20150625
